FAERS Safety Report 8377605-9 (Version None)
Quarter: 2012Q2

REPORT INFORMATION
  Report Type: 
  Country: None (occurrence: None)
  Receive Date: 20120522
  Receipt Date: 20120517
  Transmission Date: 20120825
  Serious: Yes (Hospitalization, Other)
  Sender: FDA-Public Use
  Company Number: JP-PFIZER INC-2012008582

PATIENT
  Age: 77 Year
  Sex: Male
  Weight: 50 kg

DRUGS (6)
  1. ITRACONAZOLE [Suspect]
     Indication: BRONCHOPULMONARY ASPERGILLOSIS
     Dosage: 200 MG, 1X/DAY
     Route: 048
     Dates: start: 20111128, end: 20120105
  2. ZITHROMAX [Suspect]
     Dosage: 2 G, SINGLE
     Route: 048
     Dates: start: 20111219, end: 20111219
  3. GARENOXACIN MESYLATE [Suspect]
     Indication: KLEBSIELLA INFECTION
     Dosage: 400 MG, DAILY
     Route: 048
     Dates: start: 20111226, end: 20120105
  4. GARENOXACIN MESYLATE [Suspect]
     Indication: RESPIRATORY TRACT INFECTION
     Dosage: 400 MG, DAILY
     Route: 048
     Dates: start: 20111114, end: 20111127
  5. ZITHROMAX [Suspect]
     Indication: MYCOPLASMA INFECTION
     Dosage: 2 G, SINGLE
     Route: 048
     Dates: start: 20111212, end: 20111212
  6. DILTIAZEM HCL [Concomitant]
     Indication: HYPERTENSION
     Dosage: 100 MG, 1X/DAY
     Route: 048
     Dates: start: 20110901

REACTIONS (2)
  - PLEURAL EFFUSION [None]
  - LUNG INFILTRATION [None]
